FAERS Safety Report 16717906 (Version 2)
Quarter: 2019Q3

REPORT INFORMATION
  Report Type: Report from Study
  Country: US (occurrence: US)
  Receive Date: 20190819
  Receipt Date: 20190909
  Transmission Date: 20191005
  Serious: Yes (Other)
  Sender: FDA-Public Use
  Company Number: US-GILEAD-2019-0424115

PATIENT
  Age: 42 Year
  Sex: Male

DRUGS (1)
  1. AZTREONAM LYSINE [Suspect]
     Active Substance: AZTREONAM LYSINE
     Indication: CYSTIC FIBROSIS
     Dosage: 75 MG TID, CYCLING 28 DAYS ON, 28 DAYS OFF
     Route: 055

REACTIONS (3)
  - Cystic fibrosis [Unknown]
  - Gastrointestinal tube insertion [Not Recovered/Not Resolved]
  - Complication associated with device [Unknown]
